FAERS Safety Report 5221160-9 (Version None)
Quarter: 2007Q1

REPORT INFORMATION
  Report Type: 
  Country: None (occurrence: None)
  Receive Date: 20061201
  Receipt Date: 20060718
  Transmission Date: 20070707
  Serious: No
  Sender: FDA-Public Use
  Company Number: 2006PV015886

PATIENT
  Age: 61 Year
  Sex: Male
  Weight: 99.7913 kg

DRUGS (11)
  1. BYETTA [Suspect]
     Indication: DIABETES MELLITUS NON-INSULIN-DEPENDENT
     Dosage: SEE IMAGE
     Route: 058
     Dates: start: 20060615, end: 20060711
  2. BYETTA [Suspect]
     Indication: DIABETES MELLITUS NON-INSULIN-DEPENDENT
     Dosage: SEE IMAGE
     Route: 058
     Dates: start: 20060712
  3. BYETTA [Suspect]
  4. AMARYL [Concomitant]
  5. AVANDIA [Concomitant]
  6. LANTUS [Concomitant]
  7. HUMALOG [Concomitant]
  8. VIAGRA [Concomitant]
  9. TRIAMTERENE 75/50 [Concomitant]
  10. LOTENSIN [Concomitant]
  11. AMARYL [Concomitant]

REACTIONS (6)
  - BLOOD GLUCOSE INCREASED [None]
  - DIZZINESS [None]
  - HYPERHIDROSIS [None]
  - NAUSEA [None]
  - THERAPEUTIC RESPONSE UNEXPECTED [None]
  - WEIGHT DECREASED [None]
